FAERS Safety Report 14938080 (Version 1)
Quarter: 2018Q2

REPORT INFORMATION
  Report Type: Spontaneous
  Country: JP (occurrence: JP)
  Receive Date: 20180525
  Receipt Date: 20180525
  Transmission Date: 20180711
  Serious: Yes (Other)
  Sender: FDA-Public Use
  Company Number: JP-MYLANLABS-2018M1033240

PATIENT
  Age: 23 Year
  Sex: Female

DRUGS (2)
  1. TRANCOLON P [Suspect]
     Active Substance: MEPENZOLATE BROMIDE\PHENOBARBITAL
     Indication: PRODUCT USED FOR UNKNOWN INDICATION
     Dosage: UNK
     Route: 065
  2. ALENDRONATE TAB. 35MG ^PFIZER^ [Suspect]
     Active Substance: ALENDRONATE SODIUM
     Indication: PRODUCT USED FOR UNKNOWN INDICATION
     Dosage: UNK
     Route: 065
     Dates: start: 201509, end: 201511

REACTIONS (1)
  - Erythema multiforme [Unknown]
